FAERS Safety Report 7305324-6 (Version None)
Quarter: 2011Q1

REPORT INFORMATION
  Report Type: 
  Country: None (occurrence: None)
  Receive Date: 20110222
  Receipt Date: 20110208
  Transmission Date: 20110831
  Serious: Yes (Other)
  Sender: FDA-Public Use
  Company Number: PHHY2011CA09581

PATIENT
  Sex: Male

DRUGS (4)
  1. VINORELBINE [Concomitant]
     Dosage: 32 MG, UNK
  2. CISPLATIN [Concomitant]
     Dosage: 161 MG, UNK
  3. CLOZARIL [Suspect]
     Indication: SCHIZOPHRENIA
     Dosage: 350 MG, QHS
     Route: 048
     Dates: start: 19921005
  4. DECAPRYN [Concomitant]
     Dosage: 8 MG, QD
     Route: 048

REACTIONS (1)
  - LUNG NEOPLASM MALIGNANT [None]
